FAERS Safety Report 17548212 (Version 1)
Quarter: 2020Q1

REPORT INFORMATION
  Report Type: Spontaneous
  Country: NL (occurrence: NL)
  Receive Date: 20200317
  Receipt Date: 20200317
  Transmission Date: 20200409
  Serious: Yes (Other)
  Sender: FDA-Public Use
  Company Number: NL-TEVA-2020-NL-1199937

PATIENT
  Sex: Female
  Weight: 61 kg

DRUGS (2)
  1. ESCITALOPRAM [Suspect]
     Active Substance: ESCITALOPRAM OXALATE
     Indication: DEPRESSION
     Dosage: 10 MILLIGRAM DAILY; 1 TIME DAILY, 1
     Dates: start: 20191206, end: 20200104
  2. ARIPIPRAZOL [Suspect]
     Active Substance: ARIPIPRAZOLE
     Dates: start: 20191206

REACTIONS (4)
  - Suicidal ideation [Unknown]
  - Depressed mood [Unknown]
  - Intentional self-injury [Not Recovered/Not Resolved]
  - Condition aggravated [Not Recovered/Not Resolved]
